FAERS Safety Report 14950534 (Version 12)
Quarter: 2022Q4

REPORT INFORMATION
  Report Type: Other
  Country: CA (occurrence: None)
  Receive Date: 20180530
  Receipt Date: 20221221
  Transmission Date: 20230112
  Serious: Yes (Other)
  Sender: FDA-Public Use
  Company Number: CA-ROCHE-2129535

PATIENT
  Sex: Male
  Weight: 91.708 kg

DRUGS (5)
  1. OCREVUS [Suspect]
     Active Substance: OCRELIZUMAB
     Indication: Relapsing-remitting multiple sclerosis
     Dosage: ONLY RECEIVED INITIAL DOSAGE. MAINTENANCE IN MAY 300MG DAY 0 AND DAY 14, 600MG IV IN 500 ML 0.9 PERC
     Route: 042
     Dates: start: 20171117
  2. ZOPICLONE [Concomitant]
     Active Substance: ZOPICLONE
     Dosage: AT BED TIME
     Route: 048
  3. AMITRIPTYLINE [Concomitant]
     Active Substance: AMITRIPTYLINE
     Dosage: AT BED TIME
     Route: 048
  4. TELMISARTAN [Concomitant]
     Active Substance: TELMISARTAN
  5. NADOLOL [Concomitant]
     Active Substance: NADOLOL

REACTIONS (13)
  - Disturbance in attention [Unknown]
  - Amnesia [Unknown]
  - Confusional state [Not Recovered/Not Resolved]
  - Disturbance in attention [Unknown]
  - Infusion related reaction [Recovered/Resolved]
  - Balance disorder [Unknown]
  - Skin discolouration [Unknown]
  - Infusion related reaction [Recovered/Resolved]
  - Headache [Unknown]
  - Skin discolouration [Unknown]
  - Hypoaesthesia [Unknown]
  - Somnolence [Unknown]
  - Fatigue [Unknown]
